FAERS Safety Report 16532294 (Version 1)
Quarter: 2019Q3

REPORT INFORMATION
  Report Type: Spontaneous
  Country: US (occurrence: US)
  Receive Date: 20190703
  Receipt Date: 20190703
  Transmission Date: 20191004
  Serious: Yes (Hospitalization)
  Sender: FDA-Public Use
  Company Number: None

PATIENT
  Age: 59 Year
  Sex: Female

DRUGS (3)
  1. METHOTREXATE, FOLIC ACID [Concomitant]
  2. LEVOTHYROXIN, CYMBALTA, WELLBUTRIN [Concomitant]
  3. ENBREL [Suspect]
     Active Substance: ETANERCEPT
     Indication: RHEUMATOID ARTHRITIS
     Dosage: ?          OTHER FREQUENCY:ONCE WEEKLY;?
     Route: 058
     Dates: start: 20171026

REACTIONS (4)
  - Injection site pruritus [None]
  - Foot operation [None]
  - Injection site erythema [None]
  - Therapy cessation [None]

NARRATIVE: CASE EVENT DATE: 20190621
